FAERS Safety Report 5835491-2 (Version None)
Quarter: 2008Q3

REPORT INFORMATION
  Report Type: 
  Country: None (occurrence: None)
  Receive Date: 20080806
  Receipt Date: 20051025
  Transmission Date: 20090109
  Serious: Yes (Other)
  Sender: FDA-Public Use
  Company Number: IT-ROCHE-572254

PATIENT
  Sex: Male

DRUGS (2)
  1. PEGASYS [Suspect]
     Route: 065
     Dates: start: 20040216, end: 20040311
  2. RIBAVIRIN [Suspect]
     Route: 065
     Dates: start: 20040216, end: 20040311

REACTIONS (1)
  - LIBIDO DECREASED [None]
